FAERS Safety Report 11816213 (Version 1)
Quarter: 2015Q4

REPORT INFORMATION
  Report Type: Spontaneous
  Country: CN (occurrence: CN)
  Receive Date: 20151209
  Receipt Date: 20151209
  Transmission Date: 20160305
  Serious: Yes (Death, Hospitalization)
  Sender: FDA-Public Use
  Company Number: PHHY2015CN160536

PATIENT
  Age: 61 Year
  Sex: Female

DRUGS (3)
  1. MYCOPHENOLATE MOFETIL. [Suspect]
     Active Substance: MYCOPHENOLATE MOFETIL
     Indication: MICROSCOPIC POLYANGIITIS
     Route: 065
  2. METHYLPREDNISOLONE. [Suspect]
     Active Substance: METHYLPREDNISOLONE
     Indication: MICROSCOPIC POLYANGIITIS
     Dosage: 1 G, QD
     Route: 065
  3. PREDNISONE. [Suspect]
     Active Substance: PREDNISONE
     Indication: MICROSCOPIC POLYANGIITIS
     Route: 048

REACTIONS (2)
  - Pneumocystis jirovecii pneumonia [Fatal]
  - Respiratory failure [Fatal]
